FAERS Safety Report 4346006-2 (Version None)
Quarter: 2004Q2

REPORT INFORMATION
  Report Type: 
  Country: None (occurrence: None)
  Receive Date: 20040423
  Receipt Date: 20040416
  Transmission Date: 20050107
  Serious: Yes (Hospitalization)
  Sender: FDA-Public Use
  Company Number: 04-00190

PATIENT
  Sex: Male
  Weight: 83.9154 kg

DRUGS (7)
  1. ENULOSE [Suspect]
     Indication: CONSTIPATION
     Dosage: 10G/15ML, TWO TABLESPOONS THREE TIMES DAILY, ORAL
     Route: 048
     Dates: start: 20030101
  2. GLYBURIDE [Concomitant]
  3. LOTREL [Concomitant]
  4. PAXIL [Concomitant]
  5. ASPIRIN [Concomitant]
  6. ATENOLOL [Concomitant]
  7. METAMUCIL-2 [Concomitant]

REACTIONS (4)
  - ABDOMINAL DISTENSION [None]
  - CONSTIPATION [None]
  - DRUG INEFFECTIVE [None]
  - RECTAL HAEMORRHAGE [None]
